FAERS Safety Report 11518802 (Version 1)
Quarter: 2015Q3

REPORT INFORMATION
  Report Type: Spontaneous
  Country: AU (occurrence: AU)
  Receive Date: 20150917
  Receipt Date: 20150917
  Transmission Date: 20151125
  Serious: Yes (Other)
  Sender: FDA-Public Use
  Company Number: AU-MYLANLABS-2015M1031241

PATIENT

DRUGS (3)
  1. FLUOXETINE [Suspect]
     Active Substance: FLUOXETINE\FLUOXETINE HYDROCHLORIDE
     Indication: PRODUCT USED FOR UNKNOWN INDICATION
     Route: 065
  2. ATOMOXETINE [Suspect]
     Active Substance: ATOMOXETINE
     Indication: PRODUCT USED FOR UNKNOWN INDICATION
     Route: 065
  3. BUPROPION. [Concomitant]
     Active Substance: BUPROPION
     Route: 065

REACTIONS (12)
  - Coma [Unknown]
  - Tachycardia [Unknown]
  - Urinary incontinence [Unknown]
  - Amnesia [Unknown]
  - Tongue biting [Unknown]
  - Agitation [Unknown]
  - Anxiety [Unknown]
  - Hypertension [Unknown]
  - Headache [Unknown]
  - Generalised tonic-clonic seizure [Unknown]
  - Oculogyric crisis [Unknown]
  - Dystonia [Unknown]
